FAERS Safety Report 19737063 (Version 1)
Quarter: 2021Q3

REPORT INFORMATION
  Report Type: Spontaneous
  Country: US (occurrence: US)
  Receive Date: 20210823
  Receipt Date: 20210823
  Transmission Date: 20211014
  Serious: No
  Sender: FDA-Public Use
  Company Number: US-ASTRAZENECA-2021A646962

PATIENT
  Age: 71 Year
  Sex: Female

DRUGS (1)
  1. FASENRA [Suspect]
     Active Substance: BENRALIZUMAB
     Route: 058
     Dates: start: 20210413

REACTIONS (6)
  - Blood pressure increased [Unknown]
  - Headache [Unknown]
  - Muscle spasms [Unknown]
  - Hand deformity [Unknown]
  - Pain [Unknown]
  - Foot deformity [Unknown]

NARRATIVE: CASE EVENT DATE: 20210620
